FAERS Safety Report 22278111 (Version 1)
Quarter: 2023Q2

REPORT INFORMATION
  Report Type: Spontaneous
  Country: US (occurrence: None)
  Receive Date: 20230502
  Receipt Date: 20230502
  Transmission Date: 20230722
  Serious: Yes (Hospitalization)
  Sender: FDA-Public Use
  Company Number: None

PATIENT
  Age: 74 Year
  Sex: Female
  Weight: 46.31 kg

DRUGS (5)
  1. CAPECITABINE [Suspect]
     Active Substance: CAPECITABINE
     Indication: Breast cancer female
     Dosage: FREQUENCY : TWICE A DAY;?
     Route: 048
     Dates: start: 202211
  2. CALCIUM CITRATE-VITAMIN D [Concomitant]
  3. GABAPENTIN [Concomitant]
  4. PERCOCET [Concomitant]
  5. PROCHLORPERAZINE [Concomitant]

REACTIONS (1)
  - Pneumothorax [None]
